FAERS Safety Report 17963805 (Version 1)
Quarter: 2020Q2

REPORT INFORMATION
  Report Type: Not Available
  Country: US (occurrence: US)
  Receive Date: 20200630
  Receipt Date: 20200630
  Transmission Date: 20200714
  Serious: Yes (Hospitalization)
  Sender: FDA-Public Use
  Company Number: US-NEUROCRINE BIOSCIENCES INC.-2020NBI02114

PATIENT
  Age: 79 Year
  Sex: Female

DRUGS (1)
  1. INGREZZA [Suspect]
     Active Substance: VALBENAZINE
     Indication: TARDIVE DYSKINESIA
     Route: 048
     Dates: start: 20190304

REACTIONS (5)
  - Dysstasia [Unknown]
  - Weight decreased [Unknown]
  - Fall [Unknown]
  - SARS-CoV-2 test positive [Unknown]
  - Gait inability [Unknown]

NARRATIVE: CASE EVENT DATE: 2020
